FAERS Safety Report 4846063-0 (Version None)
Quarter: 2005Q4

REPORT INFORMATION
  Report Type: 
  Country: None (occurrence: None)
  Receive Date: 20051202
  Receipt Date: 20051202
  Transmission Date: 20060501
  Serious: Yes (Death)
  Sender: FDA-Public Use
  Company Number: None

PATIENT
  Age: 31 Year
  Sex: Female
  Weight: 122.4712 kg

DRUGS (2)
  1. MS CONTIN [Suspect]
     Indication: ABDOMINAL PAIN UPPER
  2. MS CONTIN [Suspect]
     Indication: ARTHRALGIA

REACTIONS (1)
  - DEATH [None]
